FAERS Safety Report 7025280-8 (Version None)
Quarter: 2010Q4

REPORT INFORMATION
  Report Type: 
  Country: None (occurrence: None)
  Receive Date: 20101001
  Receipt Date: 20100923
  Transmission Date: 20110411
  Serious: Yes (Hospitalization, Disabling, Other)
  Sender: FDA-Public Use
  Company Number: US-MPIJNJ-2010-04979

PATIENT
  Age: 68 Year
  Sex: Male

DRUGS (3)
  1. VELCADE [Suspect]
     Dosage: UNK
     Route: 042
  2. SINEMET [Concomitant]
     Dosage: UNK
  3. REQUIP [Concomitant]

REACTIONS (6)
  - FATIGUE [None]
  - INJECTION SITE REACTION [None]
  - MUSCLE ATROPHY [None]
  - NEUROPATHY PERIPHERAL [None]
  - PERONEAL NERVE PALSY [None]
  - RASH [None]
